FAERS Safety Report 24546805 (Version 2)
Quarter: 2024Q4

REPORT INFORMATION
  Report Type: Spontaneous
  Country: JP (occurrence: JP)
  Receive Date: 20241024
  Receipt Date: 20241111
  Transmission Date: 20250115
  Serious: Yes (Hospitalization)
  Sender: BAUSCH AND LOMB
  Company Number: JP-BAUSCHBL-2024BNL036410

PATIENT
  Age: 55 Year
  Sex: Male
  Weight: 99 kg

DRUGS (2)
  1. VERTEPORFIN [Suspect]
     Active Substance: VERTEPORFIN
     Indication: Central serous chorioretinopathy
     Route: 042
     Dates: start: 20240524, end: 20240524
  2. ROHTO Z PRO D [Concomitant]
     Indication: Seasonal allergy
     Route: 047

REACTIONS (2)
  - Lumbar spinal stenosis [Recovered/Resolved]
  - Off label use [Unknown]

NARRATIVE: CASE EVENT DATE: 20240524
